FAERS Safety Report 9602766 (Version 1)
Quarter: 2013Q4

REPORT INFORMATION
  Report Type: Report from Study
  Country: BR (occurrence: BR)
  Receive Date: 20131007
  Receipt Date: 20131007
  Transmission Date: 20140711
  Serious: Yes (Other)
  Sender: FDA-Public Use
  Company Number: PHHY2013BR108217

PATIENT
  Age: 7 Year
  Sex: Female

DRUGS (1)
  1. RITALIN LA [Suspect]
     Indication: ATTENTION DEFICIT/HYPERACTIVITY DISORDER
     Dosage: 1 DF, DAILY IN THE MORNING (FROM MONDAY TO FRIDAY, NOT ON HOLIDAYS)

REACTIONS (1)
  - Haemoptysis [Recovering/Resolving]
